FAERS Safety Report 6185780-X (Version None)
Quarter: 2009Q2

REPORT INFORMATION
  Report Type: 
  Country: None (occurrence: None)
  Receive Date: 20090507
  Receipt Date: 20090501
  Transmission Date: 20091009
  Serious: Yes (Hospitalization)
  Sender: FDA-Public Use
  Company Number: 1000006068

PATIENT
  Age: 53 Year
  Sex: Female
  Weight: 103.8737 kg

DRUGS (9)
  1. TIAZAC [Suspect]
     Dosage: 180 MG (180 MG, 1 IN 1 D), ORAL; 240 MG (240 MG, 1 IN 1 D), ORAL
     Route: 048
  2. DILTIAZEM [Suspect]
     Dosage: DOSAGE FORMS, ORAL
     Route: 048
  3. LIPITOR [Concomitant]
  4. CELEBREX [Concomitant]
  5. ASPIRIN [Concomitant]
  6. BELLERGAL [Concomitant]
  7. PRILOSEC [Concomitant]
  8. MAXZIDE [Concomitant]
  9. PREMARIN [Concomitant]

REACTIONS (8)
  - CEREBROVASCULAR ACCIDENT [None]
  - CHEST DISCOMFORT [None]
  - HEADACHE [None]
  - HYPOAESTHESIA [None]
  - MIDDLE EAR EFFUSION [None]
  - NASAL MUCOSAL DISORDER [None]
  - PARAESTHESIA [None]
  - RASH [None]
